FAERS Safety Report 4675417-0 (Version None)
Quarter: 2005Q2

REPORT INFORMATION
  Report Type: 
  Country: None (occurrence: None)
  Receive Date: 20050527
  Receipt Date: 20050228
  Transmission Date: 20051028
  Serious: No
  Sender: FDA-Public Use
  Company Number: US-BRISTOL-MYERS SQUIBB COMPANY-12880167

PATIENT
  Age: 44 Year
  Sex: Female

DRUGS (4)
  1. ABILIFY [Suspect]
     Route: 048
     Dates: start: 20030818
  2. EFFEXOR [Concomitant]
  3. DARVON [Concomitant]
  4. LEVOXYL [Concomitant]

REACTIONS (1)
  - DEPRESSION [None]
